FAERS Safety Report 4276199-7 (Version None)
Quarter: 2004Q1

REPORT INFORMATION
  Report Type: 
  Country: None (occurrence: None)
  Receive Date: 20040121
  Receipt Date: 20030313
  Transmission Date: 20041129
  Serious: No
  Sender: FDA-Public Use
  Company Number: US-GLAXOSMITHKLINE-A0400242A

PATIENT
  Age: 30 Year
  Sex: Male

DRUGS (2)
  1. ZIAGEN [Suspect]
     Indication: HIV INFECTION
     Dosage: 1TAB TWICE PER DAY
     Route: 048
     Dates: start: 20020101, end: 20030206
  2. BACTRIM [Concomitant]

REACTIONS (5)
  - ABDOMINAL PAIN [None]
  - HAEMATOCHEZIA [None]
  - PAIN [None]
  - PHARYNGOLARYNGEAL PAIN [None]
  - STEATORRHOEA [None]
